FAERS Safety Report 8804118 (Version 1)
Quarter: 2012Q4

REPORT INFORMATION
  Report Type: 
  Country: DK (occurrence: DK)
  Receive Date: 20120924
  Receipt Date: 20120924
  Transmission Date: 20130627
  Serious: Yes (Other)
  Sender: FDA-Public Use
  Company Number: DK-GLAXOSMITHKLINE-B0832465A

PATIENT
  Age: 22 Year
  Sex: Female

DRUGS (7)
  1. LAMICTAL [Suspect]
     Indication: BIPOLAR DISORDER
     Dosage: 150MG per day
     Route: 065
     Dates: start: 20120808
  2. RITALIN [Concomitant]
     Dosage: 20MG Twice per day
  3. METHYLPHENIDATE HYDROCHLORIDE [Concomitant]
     Dosage: 10MG As required
  4. MARVELON [Concomitant]
     Dosage: 1TAB Per day
  5. KESTINE [Concomitant]
  6. VOLTAREN [Concomitant]
  7. PINEX [Concomitant]

REACTIONS (1)
  - Loss of consciousness [Recovered/Resolved]
